FAERS Safety Report 14013481 (Version 1)
Quarter: 2017Q3

REPORT INFORMATION
  Report Type: Spontaneous
  Country: US (occurrence: US)
  Receive Date: 20170926
  Receipt Date: 20170926
  Transmission Date: 20171128
  Serious: No
  Sender: FDA-Public Use
  Company Number: US-BAYER-2017-179102

PATIENT
  Age: 51 Year
  Sex: Male
  Weight: 77 kg

DRUGS (4)
  1. AVONEX [Concomitant]
     Active Substance: INTERFERON BETA-1A
     Dosage: UNK
  2. ALEVE [Suspect]
     Active Substance: NAPROXEN SODIUM
     Indication: INFLUENZA LIKE ILLNESS
     Dosage: 1 DF, UNK
  3. ALEVE [Suspect]
     Active Substance: NAPROXEN SODIUM
     Indication: INFLUENZA LIKE ILLNESS
     Dosage: 2 DF, UNK
     Route: 048
     Dates: start: 2010
  4. GABAPENTIN. [Concomitant]
     Active Substance: GABAPENTIN
     Dosage: UNK

REACTIONS (2)
  - Therapeutic response unexpected [Unknown]
  - Product use in unapproved indication [Unknown]

NARRATIVE: CASE EVENT DATE: 2010
